FAERS Safety Report 5290464-6 (Version None)
Quarter: 2007Q2

REPORT INFORMATION
  Report Type: 
  Country: None (occurrence: None)
  Receive Date: 20070409
  Receipt Date: 20070326
  Transmission Date: 20071010
  Serious: Yes (Hospitalization)
  Sender: FDA-Public Use
  Company Number: PHRM2007FR01139

PATIENT
  Age: 81 Year
  Sex: Female

DRUGS (8)
  1. BISOPROLOL FUMARATE [Suspect]
     Dosage: 5 MG/DAY
     Route: 048
  2. TERCIAN [Suspect]
     Dosage: 6 DF/DAY
     Route: 048
  3. PLAVIX [Concomitant]
     Route: 048
  4. LASIX [Concomitant]
     Route: 048
  5. KALEORID [Concomitant]
     Route: 048
  6. RISPERDAL [Concomitant]
     Route: 048
  7. ACARBOSE [Concomitant]
     Route: 048
  8. EXELON [Suspect]
     Dosage: 3 MG/DAY
     Route: 048

REACTIONS (6)
  - BUNDLE BRANCH BLOCK [None]
  - CARDIAC DISORDER [None]
  - CLAVICLE FRACTURE [None]
  - HEART RATE DECREASED [None]
  - LOSS OF CONSCIOUSNESS [None]
  - MALAISE [None]
